FAERS Safety Report 25776286 (Version 1)
Quarter: 2025Q3

REPORT INFORMATION
  Report Type: Spontaneous
  Country: US (occurrence: US)
  Receive Date: 20250909
  Receipt Date: 20250909
  Transmission Date: 20251020
  Serious: No
  Sender: DOMPE FARMACEUTICI
  Company Number: US-FARMAPROD-202408-2999

PATIENT
  Sex: Female

DRUGS (20)
  1. OXERVATE [Suspect]
     Active Substance: CENEGERMIN-BKBJ
     Indication: Neurotrophic keratopathy
     Route: 047
     Dates: start: 20220701, end: 20220826
  2. OXERVATE [Suspect]
     Active Substance: CENEGERMIN-BKBJ
     Route: 047
     Dates: start: 20220826
  3. OXERVATE [Suspect]
     Active Substance: CENEGERMIN-BKBJ
     Route: 047
     Dates: start: 20240801
  4. LIPITOR [Concomitant]
     Active Substance: ATORVASTATIN CALCIUM
  5. LEXAPRO [Concomitant]
     Active Substance: ESCITALOPRAM OXALATE
  6. ACETYLCYSTEINE [Concomitant]
     Active Substance: ACETYLCYSTEINE
  7. MINERALS\VITAMINS [Concomitant]
     Active Substance: MINERALS\VITAMINS
  8. LYSINE [Concomitant]
     Active Substance: LYSINE
  9. VITAMINS [Concomitant]
     Active Substance: VITAMINS
  10. HERBALS\TURMERIC [Concomitant]
     Active Substance: HERBALS\TURMERIC
  11. COENZYME Q10 [Concomitant]
     Active Substance: DIETARY SUPPLEMENT\UBIDECARENONE
  12. MIRALAX [Concomitant]
     Active Substance: POLYETHYLENE GLYCOL 3350
  13. GATIFLOXACIN [Concomitant]
     Active Substance: GATIFLOXACIN
  14. FAMCICLOVIR [Concomitant]
     Active Substance: FAMCICLOVIR
  15. CLOBETASOL PROPIONATE [Concomitant]
     Active Substance: CLOBETASOL PROPIONATE
  16. ZIRGAN [Concomitant]
     Active Substance: GANCICLOVIR
  17. LOTEMAX [Concomitant]
     Active Substance: LOTEPREDNOL ETABONATE
  18. AZASITE [Concomitant]
     Active Substance: AZITHROMYCIN MONOHYDRATE
  19. MODAFINIL [Concomitant]
     Active Substance: MODAFINIL
  20. LEVOTHYROXINE [Concomitant]
     Active Substance: LEVOTHYROXINE

REACTIONS (4)
  - Eyelid pain [Unknown]
  - Swelling of eyelid [Unknown]
  - Inappropriate schedule of product administration [Unknown]
  - Eustachian tube disorder [Unknown]
